FAERS Safety Report 24379193 (Version 6)
Quarter: 2025Q4

REPORT INFORMATION
  Report Type: Spontaneous
  Country: US (occurrence: US)
  Receive Date: 20240930
  Receipt Date: 20251224
  Transmission Date: 20260117
  Serious: No
  Sender: TRAVERE THERAPEUTICS
  Company Number: US-TRAVERE-2024TVT00883

PATIENT
  Age: 55 Year
  Sex: Female

DRUGS (2)
  1. FILSPARI [Suspect]
     Active Substance: SPARSENTAN
     Indication: IgA nephropathy
     Route: 048
     Dates: start: 202408
  2. FILSPARI [Suspect]
     Active Substance: SPARSENTAN
     Dosage: LOT NUMBER: 1976071, EXPIRY DATE: 30-MAY-2026?LOT NUMBER: 1979025, EXPIRY DATE: 31-AUG-2025
     Route: 048
     Dates: start: 202408

REACTIONS (7)
  - Flatulence [Unknown]
  - Weight increased [Unknown]
  - Urine abnormality [Unknown]
  - Decreased appetite [Unknown]
  - Fluid retention [Unknown]
  - Fatigue [None]
  - Tenderness [Unknown]

NARRATIVE: CASE EVENT DATE: 20250303
